FAERS Safety Report 10162878 (Version 1)
Quarter: 2014Q2

REPORT INFORMATION
  Report Type: Report from Study
  Country: CN (occurrence: CN)
  Receive Date: 20140509
  Receipt Date: 20140509
  Transmission Date: 20141212
  Serious: Yes (Death, Other)
  Sender: FDA-Public Use
  Company Number: PHHY2014CN055927

PATIENT
  Sex: Male
  Weight: 80 kg

DRUGS (9)
  1. GLIVEC [Suspect]
     Indication: CHRONIC MYELOID LEUKAEMIA
     Dosage: 400 TO 600 MG, QD
     Route: 048
     Dates: start: 20130809
  2. GLIVEC [Suspect]
     Dosage: UNK UKN, UNK
  3. HOMOHARRINGTONINE [Concomitant]
     Indication: CHRONIC MYELOID LEUKAEMIA
     Dosage: 4 MG, QD
     Route: 042
     Dates: start: 20130726, end: 20131028
  4. CYTARABINE [Concomitant]
     Indication: CHRONIC MYELOID LEUKAEMIA
     Dosage: 200 MG, QD
     Route: 042
     Dates: start: 20130726, end: 20131125
  5. ACLACINOMYCIN [Concomitant]
     Indication: CHRONIC MYELOID LEUKAEMIA
     Dosage: 20 MG, QD
     Route: 042
     Dates: start: 20130726, end: 20131028
  6. MITOXANTRONE [Concomitant]
     Indication: CHRONIC MYELOID LEUKAEMIA
     Dosage: 10 MG, QD
     Route: 042
     Dates: start: 20131121, end: 20131125
  7. PIRARUBICIN [Concomitant]
     Indication: CHRONIC MYELOID LEUKAEMIA
     Dosage: 40 MG, QD
     Route: 042
     Dates: start: 20131209, end: 20131213
  8. TENIPOSIDE [Concomitant]
     Indication: CHRONIC MYELOID LEUKAEMIA
     Dosage: 100 MG, QD
     Route: 042
     Dates: start: 20131209, end: 20131213
  9. DAUNOMYCIN [Concomitant]
     Dosage: 20 MG, UNK
     Dates: start: 20140203, end: 20140206

REACTIONS (7)
  - Leukaemic infiltration [Fatal]
  - Infection [Fatal]
  - Chronic myeloid leukaemia [Fatal]
  - Blast crisis in myelogenous leukaemia [Fatal]
  - Leukaemia recurrent [None]
  - White blood cell count increased [Unknown]
  - Therapeutic response decreased [Unknown]
